FAERS Safety Report 8812130 (Version 1)
Quarter: 2012Q4

REPORT INFORMATION
  Report Type: 
  Country: US (occurrence: US)
  Receive Date: 20120927
  Receipt Date: 20120927
  Transmission Date: 20130627
  Serious: No
  Sender: FDA-Public Use
  Company Number: US-ASTRAZENECA-2012SE64693

PATIENT
  Age: 58 Year
  Sex: Female

DRUGS (1)
  1. ENTOCORT EC [Suspect]
     Indication: COLITIS MICROSCOPIC
     Route: 048

REACTIONS (5)
  - Adverse event [Unknown]
  - Activities of daily living impaired [Unknown]
  - Abdominal pain upper [Unknown]
  - Drug dose omission [Unknown]
  - Off label use [Unknown]
